FAERS Safety Report 18740152 (Version 4)
Quarter: 2021Q1

REPORT INFORMATION
  Report Type: Spontaneous
  Country: US (occurrence: US)
  Receive Date: 20210114
  Receipt Date: 20210212
  Transmission Date: 20210419
  Serious: Yes (Other)
  Sender: FDA-Public Use
  Company Number: US-PFIZER INC-2020382379

PATIENT
  Age: 57 Year
  Sex: Female
  Weight: 65.31 kg

DRUGS (1)
  1. LYRICA [Suspect]
     Active Substance: PREGABALIN
     Indication: LUMBAR RADICULOPATHY
     Dosage: 75 MG, 2X/DAY
     Route: 048

REACTIONS (5)
  - Sensitivity to weather change [Unknown]
  - Bone pain [Unknown]
  - Cervical vertebral fracture [Unknown]
  - Hepatic cyst [Unknown]
  - Illness [Unknown]
